FAERS Safety Report 6205797-6 (Version None)
Quarter: 2009Q2

REPORT INFORMATION
  Report Type: 
  Country: None (occurrence: None)
  Receive Date: 20090527
  Receipt Date: 20090429
  Transmission Date: 20091009
  Serious: No
  Sender: FDA-Public Use
  Company Number: US-ABBOTT-09P-163-0570445-00

PATIENT
  Sex: Female
  Weight: 81.72 kg

DRUGS (20)
  1. SIMCOR [Suspect]
     Indication: BLOOD CHOLESTEROL INCREASED
     Dosage: 500MG/20MG
     Dates: start: 20081001
  2. SIMCOR [Suspect]
     Indication: HIGH DENSITY LIPOPROTEIN DECREASED
  3. COREG [Concomitant]
     Indication: DRUG USE FOR UNKNOWN INDICATION
  4. MAGNESIUM SULFATE [Concomitant]
     Indication: DRUG USE FOR UNKNOWN INDICATION
  5. ZYRTEC [Concomitant]
     Indication: DRUG USE FOR UNKNOWN INDICATION
  6. GLYBURIDE [Concomitant]
     Indication: DRUG USE FOR UNKNOWN INDICATION
  7. FEMARA [Concomitant]
     Indication: DRUG USE FOR UNKNOWN INDICATION
  8. DILTIAZEM [Concomitant]
     Indication: DRUG USE FOR UNKNOWN INDICATION
  9. AVAPRO [Concomitant]
     Indication: DRUG USE FOR UNKNOWN INDICATION
  10. TERAZOSYN [Concomitant]
     Indication: DRUG USE FOR UNKNOWN INDICATION
  11. SULFASALAZINE [Concomitant]
     Indication: DRUG USE FOR UNKNOWN INDICATION
  12. CICLYCLOMINE HCL [Concomitant]
     Indication: DRUG USE FOR UNKNOWN INDICATION
  13. CENTRUM [Concomitant]
     Indication: DRUG USE FOR UNKNOWN INDICATION
  14. ASCORBIC ACID [Concomitant]
     Indication: DRUG USE FOR UNKNOWN INDICATION
  15. FISH OIL [Concomitant]
     Indication: DRUG USE FOR UNKNOWN INDICATION
  16. GLUCOSAMINE CHONDROITIN [Concomitant]
     Indication: DRUG USE FOR UNKNOWN INDICATION
  17. CATAPRESS PATCH [Concomitant]
     Indication: DRUG USE FOR UNKNOWN INDICATION
  18. ALLOPURINOL [Concomitant]
     Indication: DRUG USE FOR UNKNOWN INDICATION
  19. IRON [Concomitant]
     Indication: DRUG USE FOR UNKNOWN INDICATION
  20. POTASSIUM CHLORIDE [Concomitant]
     Indication: DRUG USE FOR UNKNOWN INDICATION

REACTIONS (13)
  - ADVERSE DRUG REACTION [None]
  - BLOOD CREATININE INCREASED [None]
  - BLOOD IRON DECREASED [None]
  - BLOOD URIC ACID INCREASED [None]
  - BUCCAL MUCOSAL ROUGHENING [None]
  - CHEILITIS [None]
  - FLUSHING [None]
  - ORAL PAIN [None]
  - PARAESTHESIA [None]
  - SKIN BURNING SENSATION [None]
  - STOMATITIS [None]
  - SYNCOPE [None]
  - TONGUE DISORDER [None]
